FAERS Safety Report 26010749 (Version 2)
Quarter: 2025Q4

REPORT INFORMATION
  Report Type: Spontaneous
  Country: EU (occurrence: EU)
  Receive Date: 20251107
  Receipt Date: 20251205
  Transmission Date: 20260118
  Serious: Yes (Other)
  Sender: RANBAXY
  Company Number: EU-SUN PHARMACEUTICAL INDUSTRIES LTD-2025RR-535095

PATIENT
  Age: 46 Year
  Sex: Female
  Weight: 73 kg

DRUGS (10)
  1. PEMETREXED [Suspect]
     Active Substance: PEMETREXED
     Indication: Non-small cell lung cancer
     Dosage: UNK
     Route: 065
  2. PEMETREXED [Suspect]
     Active Substance: PEMETREXED
     Dosage: UNK
     Route: 065
     Dates: start: 202306, end: 202308
  3. CARBOPLATIN [Suspect]
     Active Substance: CARBOPLATIN
     Indication: Non-small cell lung cancer
     Dosage: UNK, 1 CYCLE
     Route: 065
     Dates: start: 20220420
  4. CARBOPLATIN [Suspect]
     Active Substance: CARBOPLATIN
     Dosage: UNK, 3 CYCLES
     Route: 065
     Dates: start: 20220515, end: 20220623
  5. CARBOPLATIN [Suspect]
     Active Substance: CARBOPLATIN
     Dosage: UNK, 2 CYCLES
     Route: 065
     Dates: start: 20220623, end: 20220922
  6. CARBOPLATIN [Suspect]
     Active Substance: CARBOPLATIN
     Dosage: UNK, 2 CYCLES
     Route: 065
     Dates: start: 20220922, end: 20230119
  7. CARBOPLATIN [Suspect]
     Active Substance: CARBOPLATIN
     Dosage: UNK, 3 CYCLES
     Route: 065
     Dates: start: 20230621, end: 20230807
  8. PACLITAXEL [Suspect]
     Active Substance: PACLITAXEL
     Indication: Non-small cell lung cancer
     Dosage: UNK, 2 CYCLES
     Route: 065
     Dates: start: 20220623, end: 20220922
  9. PEMBROLIZUMAB [Suspect]
     Active Substance: PEMBROLIZUMAB
     Indication: Non-small cell lung cancer
     Dosage: UNK, 3 CYCLES
     Route: 065
     Dates: start: 20220515, end: 20220623
  10. DURVALUMAB [Suspect]
     Active Substance: DURVALUMAB
     Indication: Non-small cell lung cancer
     Dosage: UNK
     Route: 065
     Dates: start: 20220922, end: 20230119

REACTIONS (2)
  - Disease progression [Recovering/Resolving]
  - Anaphylactic reaction [Unknown]

NARRATIVE: CASE EVENT DATE: 20230801
